FAERS Safety Report 5245354-1 (Version None)
Quarter: 2007Q1

REPORT INFORMATION
  Report Type: 
  Country: None (occurrence: None)
  Receive Date: 20070223
  Receipt Date: 20070213
  Transmission Date: 20070707
  Serious: Yes (Other)
  Sender: FDA-Public Use
  Company Number: PHBS2007IE02883

PATIENT

DRUGS (1)
  1. SIMULECT [Suspect]
     Indication: LUNG TRANSPLANT

REACTIONS (3)
  - COMPLICATIONS OF TRANSPLANT SURGERY [None]
  - PLEURAL EFFUSION [None]
  - TRANSPLANT REJECTION [None]
